FAERS Safety Report 7635293-0 (Version None)
Quarter: 2011Q3

REPORT INFORMATION
  Report Type: 
  Country: None (occurrence: None)
  Receive Date: 20110718
  Receipt Date: 20110705
  Transmission Date: 20111222
  Serious: Yes (Hospitalization)
  Sender: FDA-Public Use
  Company Number: 11-000742

PATIENT
  Age: 66 Year
  Sex: Female
  Weight: 59.9 kg

DRUGS (6)
  1. GABAPENTIN [Concomitant]
  2. OXYCODONE HCL [Concomitant]
  3. XYZAL [Concomitant]
  4. SYNTHROID [Concomitant]
  5. PRILOSEC [Concomitant]
  6. FEMRING [Suspect]
     Indication: ATROPHIC VULVOVAGINITIS
     Dosage: 0.1 MG , QD EVERY SIX WEEKS, VAGINAL
     Route: 067
     Dates: start: 20040101

REACTIONS (4)
  - VULVOVAGINAL MYCOTIC INFECTION [None]
  - BACK DISORDER [None]
  - SPINAL LAMINECTOMY [None]
  - DRUG INEFFECTIVE [None]
